FAERS Safety Report 8848823 (Version 5)
Quarter: 2013Q1

REPORT INFORMATION
  Report Type: Report from Study
  Country: NL (occurrence: NL)
  Receive Date: 20121018
  Receipt Date: 20130121
  Transmission Date: 20140127
  Serious: Yes (Hospitalization, Disabling)
  Sender: FDA-Public Use
  Company Number: NL-GENZYME-CAMP-1002404

PATIENT
  Age: 54 Year
  Sex: Male
  Weight: 72.6 kg

DRUGS (6)
  1. CAMPATH [Suspect]
     Indication: T-CELL LYMPHOMA
     Dosage: 300 MG, 1XPER CYCLE
     Route: 058
     Dates: start: 20120229, end: 20120509
  2. DOXORUBICIN [Suspect]
     Indication: T-CELL LYMPHOMA
     Dosage: 102 MG, 1XPER CYCLE
     Route: 042
     Dates: start: 20120229, end: 20120613
  3. VINCRISTINE [Suspect]
     Indication: T-CELL LYMPHOMA
     Dosage: 2 MG, 1XPER CYCLE
     Route: 042
     Dates: start: 20120229, end: 20120404
  4. PREDNISONE [Suspect]
     Indication: T-CELL LYMPHOMA
     Dosage: 100 MG, 5XPER CYCLE
     Route: 048
     Dates: start: 20120229, end: 20120617
  5. PEGFILGRASTIM [Suspect]
     Indication: T-CELL LYMPHOMA
     Dosage: 6 MG, 1XPER CYCLE
     Route: 058
     Dates: start: 20120303, end: 20120616
  6. CYCLOPHOSPHAMIDE [Suspect]
     Indication: T-CELL LYMPHOMA
     Dosage: 1520 MG, 1XPER CYCLE
     Route: 042
     Dates: start: 20120229, end: 20120613

REACTIONS (4)
  - Ileal stenosis [Recovered/Resolved]
  - Tuberculosis gastrointestinal [Recovered/Resolved]
  - Pyrexia [Recovered/Resolved]
  - Febrile neutropenia [Recovered/Resolved]
